FAERS Safety Report 8899019 (Version 3)
Quarter: 2012Q4

REPORT INFORMATION
  Report Type: 
  Country: US (occurrence: US)
  Receive Date: 20121109
  Receipt Date: 20121213
  Transmission Date: 20130627
  Serious: Yes (Death, Life-Threatening, Hospitalization, Disabling, Other)
  Sender: FDA-Public Use
  Company Number: US-009507513-1211USA001301

PATIENT
  Age: 62 Year
  Sex: Male

DRUGS (4)
  1. VICTRELIS [Suspect]
     Indication: HEPATIC CIRRHOSIS
     Dosage: 800 mg, tid
     Route: 048
     Dates: start: 20120817
  2. RIBAVIRIN [Suspect]
     Dosage: UNK
     Dates: start: 20120720
  3. PEGASYS [Suspect]
     Dosage: UNK
     Dates: start: 20120720
  4. CYCLOSPORINE [Concomitant]

REACTIONS (2)
  - Renal failure [Fatal]
  - Hepatic enzyme increased [Fatal]
